FAERS Safety Report 4767136-7 (Version None)
Quarter: 2005Q3

REPORT INFORMATION
  Report Type: 
  Country: None (occurrence: None)
  Receive Date: 20050909
  Receipt Date: 20050909
  Transmission Date: 20060218
  Serious: Yes (Hospitalization)
  Sender: FDA-Public Use
  Company Number: None

PATIENT
  Age: 51 Year
  Sex: Male
  Weight: 86.8 kg

DRUGS (13)
  1. CLOZAPINE [Suspect]
     Indication: PERSONALITY DISORDER
     Dosage: 300MG Q HS PO
     Route: 048
  2. CLOZAPINE [Suspect]
     Indication: SCHIZOPHRENIA
     Dosage: 300MG Q HS PO
     Route: 048
  3. DIGOXIN [Concomitant]
  4. COLACE [Concomitant]
  5. COSOPT [Concomitant]
  6. METOPROLOL [Concomitant]
  7. NIFEDIPINE [Concomitant]
  8. K-DUR 10 [Concomitant]
  9. ZANTAC [Concomitant]
  10. DIOVAN [Concomitant]
  11. PSEUDOPHEDRINE [Concomitant]
  12. LACTULOSE [Concomitant]
  13. MEPERIDINE [Concomitant]

REACTIONS (3)
  - PAIN [None]
  - POST PROCEDURAL COMPLICATION [None]
  - PRIAPISM [None]
